FAERS Safety Report 18941841 (Version 4)
Quarter: 2021Q2

REPORT INFORMATION
  Report Type: Report from Study
  Country: JP (occurrence: JP)
  Receive Date: 20210225
  Receipt Date: 20210505
  Transmission Date: 20210717
  Serious: Yes (Death, Other)
  Sender: FDA-Public Use
  Company Number: JP-PFIZER INC-2020386374

PATIENT
  Age: 77 Year
  Sex: Female
  Weight: 60.5 kg

DRUGS (7)
  1. BRAFTOVI [Suspect]
     Active Substance: ENCORAFENIB
     Indication: MALIGNANT MELANOMA
     Dosage: 300 MG, EVERYDAY
     Route: 048
     Dates: start: 20200727, end: 20200907
  2. MEKTOVI [Suspect]
     Active Substance: BINIMETINIB
     Indication: MALIGNANT MELANOMA
     Dosage: 30 MG, Q12H
     Route: 048
     Dates: start: 20200727, end: 20200907
  3. ZINC OXIDE SIMPLE OINTMENT [Concomitant]
     Active Substance: ZINC OXIDE
     Indication: ARTHROPOD STING
     Dosage: UNK (3?4 TIMES A DAY) (OINTMENT, CREAM)
     Route: 061
  4. CORTRIL [Concomitant]
     Active Substance: HYDROCORTISONE
     Dosage: 10 MG, EVERYDAY, (WHEN SYMPTOMS WERE AGGRAVATED (ONLY IN FEVER, 2 TABLETS IN THE MORNING AND 1 TABLE
     Route: 048
  5. ANTEBATE [Concomitant]
     Active Substance: BETAMETHASONE DIPROPIONATE
     Indication: ARTHROPOD STING
     Dosage: UNK (3?4 TIMES A DAY) (OINTMENT, CREAM)
     Route: 061
  6. JANUVIA [Concomitant]
     Active Substance: SITAGLIPTIN PHOSPHATE
     Dosage: 50 MG, EVERYDAY
     Route: 048
  7. NEXIUM [Concomitant]
     Active Substance: ESOMEPRAZOLE MAGNESIUM
     Dosage: 20 MG, EVERYDAY
     Route: 048

REACTIONS (2)
  - Acute myocardial infarction [Fatal]
  - Hepatic function abnormal [Recovered/Resolved]

NARRATIVE: CASE EVENT DATE: 20200907
